FAERS Safety Report 4732235-2 (Version None)
Quarter: 2005Q3

REPORT INFORMATION
  Report Type: 
  Country: None (occurrence: None)
  Receive Date: 20050802
  Receipt Date: 20050727
  Transmission Date: 20060218
  Serious: Yes (Death)
  Sender: FDA-Public Use
  Company Number: US-MERCK-0507USA04341

PATIENT
  Age: 73 Year
  Sex: Female
  Weight: 82 kg

DRUGS (5)
  1. VIOXX [Suspect]
     Indication: BURSITIS
     Route: 048
     Dates: start: 20021201, end: 20030409
  2. ASPIRIN [Concomitant]
     Indication: PAIN
     Route: 065
  3. ATENOLOL [Concomitant]
     Route: 065
  4. VERAPAMIL [Concomitant]
     Route: 065
  5. VIOXX [Suspect]
     Indication: SHOULDER PAIN
     Route: 048
     Dates: start: 20021201, end: 20030409

REACTIONS (2)
  - MYOCARDIAL INFARCTION [None]
  - SINUSITIS [None]
